FAERS Safety Report 18539157 (Version 1)
Quarter: 2020Q4

REPORT INFORMATION
  Report Type: Spontaneous
  Country: JP (occurrence: JP)
  Receive Date: 20201124
  Receipt Date: 20201124
  Transmission Date: 20210114
  Serious: Yes (Death)
  Sender: FDA-Public Use
  Company Number: JP-IPSEN BIOPHARMACEUTICALS, INC.-2020-23042

PATIENT
  Age: 70 Year
  Sex: Male

DRUGS (1)
  1. ONIVYDE [Suspect]
     Active Substance: IRINOTECAN HYDROCHLORIDE
     Indication: DUCTAL ADENOCARCINOMA OF PANCREAS
     Dosage: UNK
     Route: 041
     Dates: start: 202009, end: 202011

REACTIONS (1)
  - Death [Fatal]

NARRATIVE: CASE EVENT DATE: 202011
